FAERS Safety Report 4704889-8 (Version None)
Quarter: 2005Q2

REPORT INFORMATION
  Report Type: 
  Country: None (occurrence: None)
  Receive Date: 20050208
  Receipt Date: 20050208
  Transmission Date: 20051028
  Serious: No
  Sender: FDA-Public Use
  Company Number: None

PATIENT
  Sex: Female

DRUGS (1)
  1. METFORMIN 1000MG TABLET (WATSON) [Suspect]
     Indication: DIABETES MELLITUS NON-INSULIN-DEPENDENT
     Dosage: ONE PO BID
     Route: 048
     Dates: start: 20040503, end: 20040507

REACTIONS (3)
  - DIARRHOEA [None]
  - DIZZINESS [None]
  - NAUSEA [None]
